FAERS Safety Report 18291182 (Version 1)
Quarter: 2020Q3

REPORT INFORMATION
  Report Type: Spontaneous
  Country: NL (occurrence: NL)
  Receive Date: 20200922
  Receipt Date: 20200922
  Transmission Date: 20201103
  Serious: Yes (Other)
  Sender: FDA-Public Use
  Company Number: NL-SUN PHARMACEUTICAL INDUSTRIES LTD-2020RR-261871

PATIENT
  Age: 80 Year
  Sex: Male
  Weight: 88 kg

DRUGS (9)
  1. PREGABALIN. [Suspect]
     Active Substance: PREGABALIN
     Indication: PRODUCT USED FOR UNKNOWN INDICATION
     Dosage: CAPSULE, 75 MG (MILLIGRAM)
     Route: 065
  2. MEBEVERINE CAPSULE MGA 200MG / BRAND NAME NOT SPECIFIEDMEBEVERINE C... [Suspect]
     Active Substance: MEBEVERINE
     Indication: NEUROPATHY PERIPHERAL
     Dosage: 2; 200 MG
     Route: 065
     Dates: start: 202006
  3. COLECALCIFEROL / BRAND NAME NOT SPECIFIEDCOLECALCIFEROL [Concomitant]
     Indication: PRODUCT USED FOR UNKNOWN INDICATION
     Dosage: 10 MICROGRAM
     Route: 065
  4. ATORVASTATINE TABLET 20MG / BRAND NAME NOT SPECIFIEDATORVASTATINE T... [Concomitant]
     Indication: PRODUCT USED FOR UNKNOWN INDICATION
     Dosage: TABLET, 20 MG (MILLIGRAM)
     Route: 065
  5. PARACETAMOL TABLET  500MG / BRAND NAME NOT SPECIFIEDPARACETAMOL TAB... [Concomitant]
     Indication: PRODUCT USED FOR UNKNOWN INDICATION
     Dosage: TABLET 500 MG
     Route: 065
  6. FOLIUMZUUR TABLET 0,5MG / BRAND NAME NOT SPECIFIEDFOLIUMZUUR TABLET... [Concomitant]
     Indication: PRODUCT USED FOR UNKNOWN INDICATION
     Dosage: TABLET, 0,5 MG (MILLIGRAM)
     Route: 065
  7. MEBEVERINE CAPSULE MGA 200MG / DUSPATAL RETARD CAPSULE MGA 200MGDUS... [Concomitant]
     Indication: PRODUCT USED FOR UNKNOWN INDICATION
     Dosage: REGULATED?RELEASE CAPSULE, 200 MG (MILLIGRAMS) ()
     Route: 065
  8. ACENOCOUMAROL TABLET 1MG / BRAND NAME NOT SPECIFIEDACENOCOUMAROL TA... [Concomitant]
     Indication: PRODUCT USED FOR UNKNOWN INDICATION
     Dosage: TABLET, 1 MG (MILLIGRAM) ()
     Route: 065
  9. HYDROXOCOBALAMINE / BRAND NAME NOT SPECIFIEDHYDROXOCOBALAMINE [Concomitant]
     Indication: PRODUCT USED FOR UNKNOWN INDICATION
     Dosage: 1000 MICROGRAM
     Route: 065

REACTIONS (1)
  - Neuropathy peripheral [Not Recovered/Not Resolved]

NARRATIVE: CASE EVENT DATE: 20200620
